FAERS Safety Report 9832191 (Version 1)
Quarter: 2014Q1

REPORT INFORMATION
  Report Type: Spontaneous
  Country: US (occurrence: US)
  Receive Date: 20140121
  Receipt Date: 20140121
  Transmission Date: 20141002
  Serious: No
  Sender: FDA-Public Use
  Company Number: US-009507513-1401USA006735

PATIENT
  Sex: Female

DRUGS (7)
  1. VICTRELIS [Suspect]
     Indication: CHRONIC HEPATITIS C
     Dosage: 800 MG, TID
     Route: 048
     Dates: start: 201310
  2. PEGASYS [Suspect]
  3. RIBAPAK [Suspect]
  4. LOTREL [Concomitant]
  5. PRILOSEC [Concomitant]
     Route: 048
  6. ZYRTEC [Concomitant]
  7. ASPIRIN [Concomitant]

REACTIONS (2)
  - Pain [Unknown]
  - Rash [Unknown]
